FAERS Safety Report 22167001 (Version 1)
Quarter: 2023Q2

REPORT INFORMATION
  Report Type: Spontaneous
  Country: US (occurrence: None)
  Receive Date: 20230402
  Receipt Date: 20230402
  Transmission Date: 20230722
  Serious: Yes (Other)
  Sender: FDA-Public Use
  Company Number: None

PATIENT
  Sex: Female

DRUGS (1)
  1. BUPROPION [Suspect]
     Active Substance: BUPROPION
     Indication: Perinatal depression
     Dosage: OTHER QUANTITY : 1 TABLET(S);?FREQUENCY : DAILY;?
     Route: 048
     Dates: start: 20210827

REACTIONS (7)
  - Exposure during pregnancy [None]
  - Premature rupture of membranes [None]
  - Partial seizures [None]
  - Exposure via breast milk [None]
  - Visual acuity reduced [None]
  - Visual impairment [None]
  - Infantile spasms [None]

NARRATIVE: CASE EVENT DATE: 20211112
